FAERS Safety Report 5571809-6 (Version None)
Quarter: 2007Q4

REPORT INFORMATION
  Report Type: 
  Country: None (occurrence: None)
  Receive Date: 20071221
  Receipt Date: 20071218
  Transmission Date: 20080405
  Serious: Yes (Hospitalization)
  Sender: FDA-Public Use
  Company Number: B0500478A

PATIENT
  Age: 38 Year
  Sex: Male

DRUGS (4)
  1. CLAMOXYL [Suspect]
     Indication: URINARY TRACT INFECTION
     Dosage: 1G THREE TIMES PER DAY
     Route: 048
     Dates: start: 20070714, end: 20070716
  2. TEGRETOL [Concomitant]
     Indication: POST-TRAUMATIC EPILEPSY
     Dosage: 800MG PER DAY
     Route: 048
     Dates: start: 19901201
  3. RIVOTRIL [Concomitant]
     Indication: POST-TRAUMATIC EPILEPSY
     Dosage: .5MG TWICE PER DAY
     Route: 048
     Dates: start: 19920401
  4. VALIUM [Concomitant]
     Indication: CONVULSION
     Dosage: 10MG SINGLE DOSE
     Route: 065
     Dates: start: 20070713, end: 20070713

REACTIONS (6)
  - C-REACTIVE PROTEIN INCREASED [None]
  - GENERALISED ERYTHEMA [None]
  - PURPURA [None]
  - PYREXIA [None]
  - RASH SCARLATINIFORM [None]
  - TOXIC SKIN ERUPTION [None]
